FAERS Safety Report 6561893-5 (Version None)
Quarter: 2010Q1

REPORT INFORMATION
  Report Type: 
  Country: None (occurrence: None)
  Receive Date: 20100130
  Receipt Date: 20091030
  Transmission Date: 20100710
  Serious: No
  Sender: FDA-Public Use
  Company Number: US-ABBOTT-09P-163-0606318-00

PATIENT
  Sex: Female
  Weight: 84.444 kg

DRUGS (2)
  1. HUMIRA [Suspect]
     Indication: PSORIATIC ARTHROPATHY
     Route: 058
     Dates: start: 20070101
  2. HUMIRA [Suspect]
     Indication: OSTEOARTHRITIS

REACTIONS (3)
  - PYREXIA [None]
  - SINUSITIS [None]
  - VITAMIN D DECREASED [None]
